FAERS Safety Report 8765770 (Version 2)
Quarter: 2012Q4

REPORT INFORMATION
  Report Type: 
  Country: US (occurrence: US)
  Receive Date: 20120903
  Receipt Date: 20121024
  Transmission Date: 20130627
  Serious: No
  Sender: FDA-Public Use
  Company Number: US-PFIZER INC-2012214966

PATIENT
  Age: 45 Year
  Sex: Female
  Weight: 90.7 kg

DRUGS (7)
  1. NEURONTIN [Suspect]
     Indication: NERVE COMPRESSION
     Dosage: UNK, 2x/day
     Route: 048
     Dates: start: 201104, end: 201108
  2. NEURONTIN [Suspect]
     Indication: NEUROPATHY PERIPHERAL
  3. LYRICA [Suspect]
     Indication: NERVE COMPRESSION
     Dosage: 150 mg, 2x/day
     Route: 048
     Dates: start: 201108
  4. LYRICA [Suspect]
     Indication: NEUROPATHY PERIPHERAL
  5. LYRICA [Suspect]
     Indication: PAIN IN EXTREMITY
  6. EFEXOR XR [Concomitant]
     Dosage: 37.5 mg, daily
  7. LOESTRIN [Concomitant]
     Indication: CONTRACEPTION
     Dosage: UNK, daily

REACTIONS (4)
  - Amnesia [Recovered/Resolved]
  - Dizziness [Recovering/Resolving]
  - Irritability [Recovered/Resolved]
  - Fatigue [Recovering/Resolving]
